FAERS Safety Report 14113188 (Version 1)
Quarter: 2017Q4

REPORT INFORMATION
  Report Type: Spontaneous
  Country: US (occurrence: None)
  Receive Date: 20171021
  Receipt Date: 20171021
  Transmission Date: 20180321
  Serious: Yes (Hospitalization)
  Sender: FDA-Public Use
  Company Number: None

PATIENT
  Age: 68 Year
  Sex: Female
  Weight: 54 kg

DRUGS (2)
  1. CAMPTOSAR [Suspect]
     Active Substance: IRINOTECAN HYDROCHLORIDE
     Dates: end: 20170925
  2. ERBITUX [Suspect]
     Active Substance: CETUXIMAB
     Dates: end: 20170925

REACTIONS (8)
  - Nausea [None]
  - Chest discomfort [None]
  - Dyspnoea [None]
  - Dehydration [None]
  - Orthostatic hypotension [None]
  - Diarrhoea [None]
  - Fatigue [None]
  - Headache [None]

NARRATIVE: CASE EVENT DATE: 20171001
